FAERS Safety Report 5481923-1 (Version None)
Quarter: 2007Q4

REPORT INFORMATION
  Report Type: 
  Country: None (occurrence: None)
  Receive Date: 20071004
  Receipt Date: 20070921
  Transmission Date: 20080405
  Serious: Yes (Hospitalization)
  Sender: FDA-Public Use
  Company Number: 2007BI016295

PATIENT
  Age: 41 Year
  Sex: Female

DRUGS (1)
  1. NATALIZUMAB [Suspect]
     Indication: MULTIPLE SCLEROSIS
     Dosage: 300 MG; QM; ;IV
     Route: 042
     Dates: start: 20060911

REACTIONS (11)
  - BLADDER DISORDER [None]
  - BLADDER OBSTRUCTION [None]
  - BLOOD UREA INCREASED [None]
  - CONDITION AGGRAVATED [None]
  - HYPERTENSION [None]
  - HYPERTONIC BLADDER [None]
  - INFECTION [None]
  - MULTIPLE SCLEROSIS [None]
  - NUCLEAR MAGNETIC RESONANCE IMAGING ABNORMAL [None]
  - PNEUMONIA [None]
  - VOMITING [None]
